FAERS Safety Report 13974828 (Version 2)
Quarter: 2017Q3

REPORT INFORMATION
  Report Type: Report from Study
  Country: TW (occurrence: TW)
  Receive Date: 20170915
  Receipt Date: 20170926
  Transmission Date: 20171128
  Serious: Yes (Hospitalization)
  Sender: FDA-Public Use
  Company Number: TW-ASTRAZENECA-2017SE93788

PATIENT
  Age: 21601 Day
  Sex: Female

DRUGS (11)
  1. TAGRISSO [Suspect]
     Active Substance: OSIMERTINIB
     Indication: NON-SMALL CELL LUNG CANCER
     Route: 048
     Dates: start: 20170822
  2. HEPATITIS B VACCINE [Concomitant]
     Active Substance: HEPATITIS B VIRUS VACCINE
     Indication: VIRAL HEPATITIS CARRIER
     Route: 048
  3. VIDISIC [Concomitant]
     Indication: DRY EYE
     Route: 047
  4. TRACETON [Concomitant]
     Indication: GASTRITIS
     Route: 048
  5. GASTRO-TIMELETS [Concomitant]
     Indication: VOMITING
     Dosage: 1.0DF AS REQUIRED
     Route: 048
     Dates: start: 20170822, end: 20170828
  6. FAMOTIDINE. [Concomitant]
     Active Substance: FAMOTIDINE
     Indication: GASTRITIS
     Route: 048
  7. AZD6094 [Suspect]
     Active Substance: SAVOLITINIB
     Indication: NON-SMALL CELL LUNG CANCER
     Route: 048
     Dates: start: 20170822
  8. GASTRO-TIMELETS [Concomitant]
     Indication: VOMITING
     Dosage: 30.0MG AS REQUIRED
     Route: 048
     Dates: start: 20170829
  9. NAPOSIN [Concomitant]
     Indication: PYREXIA
     Route: 048
     Dates: start: 20170905
  10. STROCAIN [Concomitant]
     Active Substance: OXETHAZAINE
     Indication: GASTRITIS
     Route: 048
  11. KASCOAL [Concomitant]
     Indication: ABDOMINAL PAIN
     Route: 048
     Dates: start: 20170822

REACTIONS (1)
  - Pyrexia [Not Recovered/Not Resolved]

NARRATIVE: CASE EVENT DATE: 20170907
